FAERS Safety Report 6621597-7 (Version None)
Quarter: 2010Q1

REPORT INFORMATION
  Report Type: 
  Country: None (occurrence: None)
  Receive Date: 20100223
  Receipt Date: 20100114
  Transmission Date: 20100710
  Serious: Yes (Other)
  Sender: FDA-Public Use
  Company Number: 004524

PATIENT
  Sex: Female
  Weight: 54.4 kg

DRUGS (4)
  1. CIMZIA [Suspect]
     Indication: CROHN'S DISEASE
     Dosage: 400MG SUBCUTANEOUS)
     Route: 058
     Dates: start: 20090801
  2. POTASSIUM [Concomitant]
  3. VITAMIN B-12 [Concomitant]
  4. IMODIUM [Concomitant]

REACTIONS (10)
  - ABDOMINAL PAIN UPPER [None]
  - ANXIETY [None]
  - FAMILY STRESS [None]
  - HYPOAESTHESIA [None]
  - MOOD ALTERED [None]
  - NAIL DISCOLOURATION [None]
  - PALLOR [None]
  - PARAESTHESIA [None]
  - PERIPHERAL COLDNESS [None]
  - SLEEP DISORDER [None]
